FAERS Safety Report 25819594 (Version 2)
Quarter: 2025Q4

REPORT INFORMATION
  Report Type: Spontaneous
  Country: JP (occurrence: JP)
  Receive Date: 20250918
  Receipt Date: 20251002
  Transmission Date: 20260118
  Serious: Yes (Other)
  Sender: BRISTOL-MYERS SQUIBB COMPANY
  Company Number: JP-BRISTOL-MYERS SQUIBB COMPANY-2025-127302

PATIENT
  Sex: Male

DRUGS (2)
  1. YERVOY [Suspect]
     Active Substance: IPILIMUMAB
     Indication: Malignant melanoma
  2. OPDIVO [Suspect]
     Active Substance: NIVOLUMAB
     Indication: Malignant melanoma

REACTIONS (4)
  - Lower gastrointestinal perforation [Not Recovered/Not Resolved]
  - Hypothyroidism [Recovering/Resolving]
  - Neuropathy peripheral [Recovering/Resolving]
  - Cytomegalovirus gastrointestinal infection [Unknown]
